FAERS Safety Report 6202246-9 (Version None)
Quarter: 2009Q2

REPORT INFORMATION
  Report Type: 
  Country: None (occurrence: None)
  Receive Date: 20090526
  Receipt Date: 20090515
  Transmission Date: 20091009
  Serious: Yes (Other)
  Sender: FDA-Public Use
  Company Number: NL-MERCK-0905NLD00010

PATIENT
  Age: 64 Year
  Sex: Male

DRUGS (12)
  1. SINGULAIR [Suspect]
     Indication: ASTHMA
     Route: 048
     Dates: start: 20060124, end: 20081001
  2. FLUTICASONE [Concomitant]
     Dates: start: 20050822
  3. BUDESONIDE AND FORMOTEROL FUMARATE [Concomitant]
     Dates: start: 20050822
  4. TIOTROPIUM BROMIDE [Concomitant]
     Dates: start: 20081029
  5. PREDNISOLONE [Concomitant]
     Route: 048
     Dates: start: 20060906, end: 20060913
  6. PREDNISOLONE [Concomitant]
     Route: 048
     Dates: start: 20081029
  7. RISEDRONATE SODIUM [Concomitant]
     Route: 048
     Dates: start: 20081029
  8. METRONIDAZOLE [Concomitant]
     Route: 048
     Dates: start: 20080924, end: 20081001
  9. ITRACONAZOLE [Concomitant]
     Route: 048
     Dates: start: 20080320, end: 20080327
  10. BUDESONIDE [Concomitant]
     Dates: start: 20060124, end: 20070101
  11. FORMOTEROL FUMARATE [Concomitant]
     Dates: start: 20060124, end: 20061212
  12. LEVOCETIRIZINE DIHYDROCHLORIDE [Concomitant]
     Route: 048
     Dates: start: 20050919, end: 20060915

REACTIONS (2)
  - EOSINOPHIL COUNT INCREASED [None]
  - VASCULITIS [None]
